FAERS Safety Report 7719727-9 (Version None)
Quarter: 2011Q3

REPORT INFORMATION
  Report Type: 
  Country: None (occurrence: None)
  Receive Date: 20110831
  Receipt Date: 20110823
  Transmission Date: 20111222
  Serious: Yes (Other)
  Sender: FDA-Public Use
  Company Number: GB-AMGEN-GBRSP2011043778

PATIENT
  Sex: Male

DRUGS (1)
  1. ENBREL [Suspect]
     Indication: PRODUCT USED FOR UNKNOWN INDICATION
     Dosage: UNK
     Dates: start: 20110101

REACTIONS (10)
  - MENTAL IMPAIRMENT [None]
  - ANKYLOSING SPONDYLITIS [None]
  - HEARING IMPAIRED [None]
  - DIZZINESS [None]
  - FATIGUE [None]
  - IRITIS [None]
  - HEADACHE [None]
  - DISTURBANCE IN ATTENTION [None]
  - HYPOAESTHESIA [None]
  - NAUSEA [None]
